FAERS Safety Report 7550081-1 (Version None)
Quarter: 2011Q2

REPORT INFORMATION
  Report Type: 
  Country: None (occurrence: None)
  Receive Date: 20110615
  Receipt Date: 20110607
  Transmission Date: 20111010
  Serious: Yes (Other)
  Sender: FDA-Public Use
  Company Number: PHHY2011PT47895

PATIENT
  Age: 52 Year
  Sex: Female

DRUGS (2)
  1. NAPROXEN [Suspect]
  2. NABUMETONE [Suspect]
     Dosage: 1 G, UNK

REACTIONS (5)
  - BURNING SENSATION [None]
  - DRUG ERUPTION [None]
  - PRURITUS [None]
  - PIGMENTATION DISORDER [None]
  - RASH [None]
